FAERS Safety Report 15718320 (Version 1)
Quarter: 2018Q4

REPORT INFORMATION
  Report Type: Spontaneous
  Country: US (occurrence: US)
  Receive Date: 20181213
  Receipt Date: 20181213
  Transmission Date: 20190205
  Serious: Yes (Hospitalization)
  Sender: FDA-Public Use
  Company Number: None

PATIENT
  Age: 47 Year
  Sex: Female

DRUGS (9)
  1. CYANOCOBALAMIN INJ 1000MCG [Concomitant]
     Dates: start: 20181018
  2. AMOXICILLIN CAP 500MG [Concomitant]
     Dates: start: 20181012
  3. ENBREL [Suspect]
     Active Substance: ETANERCEPT
     Indication: PSORIATIC ARTHROPATHY
     Dosage: ?          OTHER FREQUENCY:ONCE A WEEK;?
     Route: 058
  4. CYCLOBENZAPRINE TAB 10MG [Concomitant]
     Dates: start: 20181018
  5. FOLIC ACID TAB 1000MCG [Concomitant]
     Dates: start: 20181019
  6. IBUPROFEN TAB 600MG [Concomitant]
     Dates: start: 20181018
  7. CHLORHEX GLUC SOL 0.12% [Concomitant]
     Dates: start: 20181015
  8. HYDROCO/APAP TAB 7.5-325 [Concomitant]
     Dates: start: 20181015
  9. METHOTREXATE INJ 25MG/ML [Concomitant]
     Dates: start: 20181018

REACTIONS (1)
  - Surgery [None]

NARRATIVE: CASE EVENT DATE: 20181104
